FAERS Safety Report 6568503-1 (Version None)
Quarter: 2010Q1

REPORT INFORMATION
  Report Type: 
  Country: None (occurrence: None)
  Receive Date: 20100203
  Receipt Date: 20100127
  Transmission Date: 20100710
  Serious: Yes (Hospitalization)
  Sender: FDA-Public Use
  Company Number: B0630733A

PATIENT
  Age: 88 Year
  Sex: Female

DRUGS (9)
  1. COROPRES [Suspect]
     Indication: DRUG USE FOR UNKNOWN INDICATION
     Dosage: 12.5MG TWICE PER DAY
     Route: 048
     Dates: start: 20040101, end: 20091015
  2. PANTOPRAZOLE SODIUM [Concomitant]
  3. ATACAND [Concomitant]
  4. GLURENORM [Concomitant]
  5. OMACOR [Concomitant]
  6. PREVENCOR [Concomitant]
  7. TROMALYT [Concomitant]
  8. SEGURIL [Concomitant]
  9. ZYLORIC [Concomitant]

REACTIONS (8)
  - ASTHENIA [None]
  - ATRIOVENTRICULAR BLOCK [None]
  - BRADYCARDIA [None]
  - CARDIAC FAILURE CHRONIC [None]
  - DYSPNOEA [None]
  - HYPERKALAEMIA [None]
  - RENAL FAILURE [None]
  - RESPIRATORY TRACT INFECTION [None]
